FAERS Safety Report 5187972-5 (Version None)
Quarter: 2006Q4

REPORT INFORMATION
  Report Type: 
  Country: None (occurrence: None)
  Receive Date: 20061221
  Receipt Date: 20061212
  Transmission Date: 20070319
  Serious: Yes (Death, Other)
  Sender: FDA-Public Use
  Company Number: AU-BRISTOL-MYERS SQUIBB COMPANY-13609649

PATIENT
  Age: 28 Year
  Sex: Male
  Weight: 61 kg

DRUGS (11)
  1. VIDEX [Suspect]
     Dosage: PREVIOUSLY 20-SEP-1991 THROUGH 02-DEC-1991.
     Route: 048
     Dates: start: 19910920, end: 19920515
  2. CYMEVENE [Concomitant]
     Indication: INFECTION
     Route: 042
     Dates: start: 19920108, end: 19920517
  3. TRIPRIM [Concomitant]
     Indication: INFECTION
     Route: 048
     Dates: start: 19920509, end: 19920517
  4. DAPSONE [Concomitant]
     Indication: INFECTION
     Route: 048
     Dates: start: 19920509, end: 19920517
  5. ZOVIRAX [Concomitant]
     Indication: HERPES SIMPLEX
     Route: 048
     Dates: start: 19920509, end: 19920517
  6. NAPROSYN [Concomitant]
     Indication: ARTHRALGIA
     Route: 048
     Dates: start: 19920424, end: 19920517
  7. PYRIDOXINE HCL [Concomitant]
     Route: 048
     Dates: start: 19911031, end: 19920517
  8. ISONIAZID [Concomitant]
     Route: 048
     Dates: start: 19911031, end: 19920517
  9. ANSAMYCIN [Concomitant]
     Route: 048
     Dates: start: 19911031, end: 19920517
  10. LAMPRENE [Concomitant]
     Route: 048
     Dates: start: 19911031, end: 19920517
  11. DIFLUCAN [Concomitant]
     Indication: BLASTOMYCOSIS
     Route: 048
     Dates: start: 19910916, end: 19920517

REACTIONS (6)
  - ABDOMINAL PAIN [None]
  - BLOOD AMYLASE INCREASED [None]
  - DEATH [None]
  - FLATULENCE [None]
  - HEPATIC FUNCTION ABNORMAL [None]
  - PANCREATITIS [None]
